FAERS Safety Report 11661834 (Version 1)
Quarter: 2015Q4

REPORT INFORMATION
  Report Type: Spontaneous
  Country: US (occurrence: US)
  Receive Date: 20151026
  Receipt Date: 20151026
  Transmission Date: 20160304
  Serious: No
  Sender: FDA-Public Use
  Company Number: US-BAUSCH-BL-2015-013878

PATIENT
  Age: 80 Year
  Sex: Male
  Weight: 68.1 kg

DRUGS (5)
  1. ATIVAN [Suspect]
     Active Substance: LORAZEPAM
     Dosage: ? TABLET
     Route: 048
     Dates: start: 201302
  2. ATIVAN [Suspect]
     Active Substance: LORAZEPAM
     Dosage: ? TABLET
     Route: 048
     Dates: start: 201302
  3. ATIVAN [Suspect]
     Active Substance: LORAZEPAM
     Indication: SLEEP DISORDER
     Route: 048
     Dates: start: 201302
  4. ATIVAN [Suspect]
     Active Substance: LORAZEPAM
     Route: 048
     Dates: start: 201302
  5. ATIVAN [Suspect]
     Active Substance: LORAZEPAM
     Dosage: ? TABLET
     Route: 048
     Dates: start: 201302

REACTIONS (3)
  - Intentional product use issue [Unknown]
  - Balance disorder [Not Recovered/Not Resolved]
  - Gait disturbance [Not Recovered/Not Resolved]
